FAERS Safety Report 5380410-9 (Version None)
Quarter: 2007Q3

REPORT INFORMATION
  Report Type: 
  Country: None (occurrence: None)
  Receive Date: 20070706
  Receipt Date: 20070525
  Transmission Date: 20080115
  Serious: No
  Sender: FDA-Public Use
  Company Number: A0653038A

PATIENT
  Age: 60 Year
  Sex: Female

DRUGS (4)
  1. TYKERB [Suspect]
     Indication: BREAST CANCER
     Dosage: 1250MG PER DAY
     Route: 048
     Dates: start: 20070521
  2. XELODA [Suspect]
     Indication: BREAST CANCER
     Dosage: 1500MG TWICE PER DAY
     Route: 048
  3. COUMADIN [Concomitant]
  4. ASACOL [Concomitant]

REACTIONS (7)
  - ABDOMINAL PAIN UPPER [None]
  - COLD SWEAT [None]
  - DRY SKIN [None]
  - PAIN IN EXTREMITY [None]
  - PRESYNCOPE [None]
  - SKIN EXFOLIATION [None]
  - STOMACH DISCOMFORT [None]
